FAERS Safety Report 6120487-6 (Version None)
Quarter: 2009Q1

REPORT INFORMATION
  Report Type: 
  Country: None (occurrence: None)
  Receive Date: 20090317
  Receipt Date: 20090310
  Transmission Date: 20090719
  Serious: Yes (Hospitalization, Other)
  Sender: FDA-Public Use
  Company Number: FR-BRISTOL-MYERS SQUIBB COMPANY-14539290

PATIENT
  Age: 74 Year
  Sex: Male

DRUGS (3)
  1. SPRYCEL [Suspect]
     Indication: ACUTE LYMPHOCYTIC LEUKAEMIA
     Dosage: INTERRUPTED ON 03MAR09. NO. OF COURSES = 1
     Route: 048
     Dates: start: 20090218
  2. VINCRISTINE SULFATE [Suspect]
     Indication: ACUTE LYMPHOCYTIC LEUKAEMIA
     Dosage: INITIAL DOSE: 26JAN09
     Route: 042
     Dates: start: 20090218, end: 20090218
  3. DEXAMETHASONE [Suspect]
     Indication: ACUTE LYMPHOCYTIC LEUKAEMIA
     Dosage: INITIAL DOSE: 26JAN09
     Route: 042
     Dates: start: 20090218, end: 20090218

REACTIONS (4)
  - ATRIAL FIBRILLATION [None]
  - LUNG DISORDER [None]
  - PLEURAL EFFUSION [None]
  - SEPSIS [None]
